FAERS Safety Report 4642330-4 (Version None)
Quarter: 2005Q2

REPORT INFORMATION
  Report Type: 
  Country: None (occurrence: None)
  Receive Date: 20050420
  Receipt Date: 20050404
  Transmission Date: 20051028
  Serious: Yes (Other)
  Sender: FDA-Public Use
  Company Number: CA_050407962

PATIENT
  Age: 68 Year
  Sex: Male

DRUGS (6)
  1. HUMULIN-HUMAN INSULIN [Suspect]
  2. OLANZAPINE                              (OLANZAPINE) [Suspect]
     Indication: BIPOLAR DISORDER
     Dosage: 7.5 MG DAY
     Route: 048
     Dates: start: 19990101, end: 20040501
  3. CODEINE [Concomitant]
  4. INSULIN [Concomitant]
  5. LIPITOR [Concomitant]
  6. METFORMIN HCL [Concomitant]

REACTIONS (2)
  - CONVULSION [None]
  - PANCREATITIS [None]
